FAERS Safety Report 8624816-0 (Version None)
Quarter: 2012Q3

REPORT INFORMATION
  Report Type: 
  Country: None (occurrence: None)
  Receive Date: 20120827
  Receipt Date: 20120820
  Transmission Date: 20120928
  Serious: Yes (Hospitalization)
  Sender: FDA-Public Use
  Company Number: US-JNJFOC-20120809859

PATIENT
  Sex: Female
  Weight: 68.04 kg

DRUGS (7)
  1. FLUTICASONE PROPIONATE [Concomitant]
     Indication: SEASONAL ALLERGY
     Dates: start: 20120101
  2. XARELTO [Suspect]
     Indication: CEREBROVASCULAR ACCIDENT PROPHYLAXIS
     Route: 048
     Dates: start: 20120725, end: 20120809
  3. PROPAFENONE HCL [Concomitant]
     Indication: ARRHYTHMIA PROPHYLAXIS
     Route: 048
     Dates: start: 20120725
  4. XARELTO [Suspect]
     Indication: ATRIAL FIBRILLATION
     Route: 048
     Dates: start: 20120725, end: 20120809
  5. NASONEX [Concomitant]
     Indication: SEASONAL ALLERGY
  6. MINOCYCLINE HCL [Concomitant]
     Indication: ROSACEA
     Route: 048
  7. SINGULAIR [Concomitant]
     Indication: SEASONAL ALLERGY
     Dates: start: 20120731

REACTIONS (3)
  - RETROPERITONEAL HAEMORRHAGE [None]
  - DEHYDRATION [None]
  - FLANK PAIN [None]
